FAERS Safety Report 9646347 (Version 2)
Quarter: 2013Q4

REPORT INFORMATION
  Report Type: Spontaneous
  Country: US (occurrence: US)
  Receive Date: 20131025
  Receipt Date: 20131025
  Transmission Date: 20140711
  Serious: Yes (Hospitalization, Other)
  Sender: FDA-Public Use
  Company Number: US-MYLANLABS-2013S1023486

PATIENT
  Age: 76 Year
  Sex: Male
  Weight: 77.11 kg

DRUGS (2)
  1. POLYETHYLENE GLYCOL 3350 AND ELECTROLYTES FOR ORAL SOLUTION, USP [Suspect]
     Indication: COLONOSCOPY
     Route: 048
     Dates: start: 20130819, end: 20130819
  2. PROPRANOLOL [Concomitant]

REACTIONS (10)
  - Renal failure acute [Not Recovered/Not Resolved]
  - Renal failure acute [Not Recovered/Not Resolved]
  - Sepsis [Not Recovered/Not Resolved]
  - Lactic acidosis [Recovered/Resolved]
  - Haematuria [Not Recovered/Not Resolved]
  - VIIth nerve paralysis [Recovered/Resolved]
  - Dysarthria [Recovered/Resolved]
  - Dizziness [Not Recovered/Not Resolved]
  - Malaise [Not Recovered/Not Resolved]
  - Toxicity to various agents [Not Recovered/Not Resolved]
